FAERS Safety Report 9383609 (Version 2)
Quarter: 2013Q3

REPORT INFORMATION
  Report Type: Spontaneous
  Country: US (occurrence: US)
  Receive Date: 20130704
  Receipt Date: 20130809
  Transmission Date: 20140515
  Serious: No
  Sender: FDA-Public Use
  Company Number: US-PFIZER INC-2013196324

PATIENT
  Sex: Male
  Weight: 48.5 kg

DRUGS (4)
  1. LEVOXYL [Suspect]
     Indication: THYROID HORMONE REPLACEMENT THERAPY
     Dosage: 75 UG, 1X/DAY
     Route: 048
  2. LEVOXYL [Suspect]
     Indication: HYPOPITUITARISM
     Dosage: 100 UG, 1X/DAY
  3. HYDROCORTISONE [Concomitant]
     Dosage: 5 MG, 2X/DAY (BID)
  4. NUTROPIN [Concomitant]
     Dosage: UNK

REACTIONS (2)
  - Depression [Unknown]
  - Anxiety [Unknown]
